FAERS Safety Report 23747370 (Version 1)
Quarter: 2024Q2

REPORT INFORMATION
  Report Type: Report from Study
  Country: US (occurrence: None)
  Receive Date: 20240416
  Receipt Date: 20240416
  Transmission Date: 20240716
  Serious: Yes (Death, Hospitalization, Other)
  Sender: FDA-Public Use
  Company Number: 2023A207823

PATIENT
  Age: 64 Year
  Sex: Female

DRUGS (2)
  1. LYNPARZA [Suspect]
     Active Substance: OLAPARIB
     Indication: Breast cancer
     Route: 048
     Dates: start: 20230629
  2. PIQRAY [Suspect]
     Active Substance: ALPELISIB
     Indication: Breast cancer
     Route: 048
     Dates: start: 20230724, end: 20230823

REACTIONS (9)
  - Hypotension [Fatal]
  - Renal failure [Unknown]
  - Malignant neoplasm progression [Unknown]
  - Malignant ascites [Unknown]
  - Asthenia [Unknown]
  - Dehydration [Unknown]
  - Blood creatinine increased [Unknown]
  - Diarrhoea [Unknown]
  - Hypophagia [Unknown]

NARRATIVE: CASE EVENT DATE: 20230801
